FAERS Safety Report 18287226 (Version 9)
Quarter: 2021Q2

REPORT INFORMATION
  Report Type: Spontaneous
  Country: US (occurrence: US)
  Receive Date: 20200921
  Receipt Date: 20210628
  Transmission Date: 20210717
  Serious: Yes (Hospitalization)
  Sender: FDA-Public Use
  Company Number: US-SAREPTA THERAPEUTICS INC.-SRP2020-000871

PATIENT
  Age: 16 Year
  Sex: Male
  Weight: 106.4 kg

DRUGS (20)
  1. EXONDYS 51 [Suspect]
     Active Substance: ETEPLIRSEN
     Dosage: 2580 MG, WEEKLY
     Route: 042
     Dates: start: 20180223, end: 202009
  2. EMFLAZA [Concomitant]
     Active Substance: DEFLAZACORT
     Indication: STEROID THERAPY
  3. ANDROGEL [Concomitant]
     Active Substance: TESTOSTERONE
     Indication: HORMONE THERAPY
     Dosage: AS DIRECTED, QD
     Dates: start: 20181207
  4. TYLENOL [Concomitant]
     Active Substance: ACETAMINOPHEN
     Indication: PYREXIA
  5. COREG [Concomitant]
     Active Substance: CARVEDILOL
     Indication: TACHYCARDIA
     Dosage: 6.25 MG, BID
     Route: 048
     Dates: start: 20161028
  6. ZOFRAN [Concomitant]
     Active Substance: ONDANSETRON HYDROCHLORIDE
     Indication: VOMITING
  7. EMFLAZA [Concomitant]
     Active Substance: DEFLAZACORT
     Indication: DUCHENNE MUSCULAR DYSTROPHY
     Dosage: 150 MILLIGRAM, EVERY SATURDAY AND SUNDAY
     Route: 048
     Dates: start: 201804
  8. TYLENOL [Concomitant]
     Active Substance: ACETAMINOPHEN
     Indication: PAIN
     Dosage: 975 MG, EVERY 5 HOURS PRN
     Route: 048
  9. VITAMIN D3 [Concomitant]
     Active Substance: CHOLECALCIFEROL
     Indication: PROPHYLAXIS
     Dosage: 2000 IU, QD, 600 MG
     Route: 048
     Dates: start: 20091218
  10. CALTRATE WITH VITAMIN D [Concomitant]
     Active Substance: CALCIUM CARBONATE\CHOLECALCIFEROL
     Indication: OSTEOPOROSIS PROPHYLAXIS
     Dosage: 1 DOSAGE FORM, QD
     Route: 048
     Dates: start: 20091218
  11. PREVACID [Concomitant]
     Active Substance: LANSOPRAZOLE
     Indication: OESOPHAGITIS
  12. COREG [Concomitant]
     Active Substance: CARVEDILOL
     Dosage: 12.5 MG, BID
     Route: 048
  13. ZESTRIL [Concomitant]
     Active Substance: LISINOPRIL
     Indication: HYPERTENSION
     Dosage: 20 MG, QD
     Route: 048
     Dates: start: 20141219
  14. PREVACID [Concomitant]
     Active Substance: LANSOPRAZOLE
     Indication: GASTROOESOPHAGEAL REFLUX DISEASE
  15. DEFLAZACORT [Concomitant]
     Active Substance: DEFLAZACORT
     Dosage: 15 MG, EVERY MONDAY AND FRIDAY
     Route: 048
     Dates: start: 201804
  16. ZOFRAN [Concomitant]
     Active Substance: ONDANSETRON HYDROCHLORIDE
     Indication: NAUSEA
     Dosage: 4 G, Q8H PRN
     Route: 048
  17. MIRALAX [Concomitant]
     Active Substance: POLYETHYLENE GLYCOL 3350
     Indication: CONSTIPATION
     Dosage: 17 G, NIGHTLY
     Route: 048
     Dates: start: 20150604
  18. EXONDYS 51 [Suspect]
     Active Substance: ETEPLIRSEN
     Indication: DUCHENNE MUSCULAR DYSTROPHY
     Dosage: 2900 MG, WEEKLY
     Route: 042
     Dates: start: 20201110
  19. DEFLAZACORT [Concomitant]
     Active Substance: DEFLAZACORT
     Indication: STEROID THERAPY
     Dosage: 120 MG, EVERY SAT AND SUN
     Route: 048
     Dates: start: 201804
  20. PREVACID [Concomitant]
     Active Substance: LANSOPRAZOLE
     Indication: DUCHENNE MUSCULAR DYSTROPHY
     Dosage: 15 MILLIGRAM, QD
     Route: 048

REACTIONS (3)
  - Pseudomonal sepsis [Recovered/Resolved]
  - Staphylococcal infection [Recovered/Resolved]
  - Device related bacteraemia [Recovered/Resolved]

NARRATIVE: CASE EVENT DATE: 20200907
